FAERS Safety Report 4557913-X (Version None)
Quarter: 2005Q1

REPORT INFORMATION
  Report Type: 
  Country: None (occurrence: None)
  Receive Date: 20050121
  Receipt Date: 20040122
  Transmission Date: 20050727
  Serious: No
  Sender: FDA-Public Use
  Company Number: US-BRISTOL-MYERS SQUIBB COMPANY-12484333

PATIENT
  Age: 55 Year
  Sex: Male

DRUGS (8)
  1. SERZONE [Suspect]
     Indication: DEPRESSION
     Route: 048
  2. SERZONE [Suspect]
     Indication: POST-TRAUMATIC STRESS DISORDER
     Route: 048
  3. ALLOPURINOL [Concomitant]
  4. LISINOPRIL [Concomitant]
  5. FEXOFENADINE HCL [Concomitant]
  6. LANSOPRAZOLE [Concomitant]
  7. VIAGRA [Concomitant]
  8. MORPHINE SULFATE [Concomitant]

REACTIONS (1)
  - LIVER FUNCTION TEST ABNORMAL [None]
